FAERS Safety Report 7307970-2 (Version None)
Quarter: 2011Q1

REPORT INFORMATION
  Report Type: 
  Country: None (occurrence: None)
  Receive Date: 20110223
  Receipt Date: 20110214
  Transmission Date: 20110831
  Serious: Yes (Death, Life-Threatening, Hospitalization)
  Sender: FDA-Public Use
  Company Number: JP-BAYER-200912316BYL

PATIENT
  Sex: Male
  Weight: 46 kg

DRUGS (10)
  1. ALOSITOL [Concomitant]
     Dosage: AFTER BREAKFAST
     Route: 048
     Dates: end: 20090727
  2. ALDACTONE [Concomitant]
     Dosage: SICNE BEFORE ADMINISTRATION
     Route: 048
  3. LASIX [Concomitant]
     Dosage: SICNE BEFORE ADMINISTRATION, AFTER BREAKFAST
     Route: 048
  4. BLOPRESS [Concomitant]
     Dosage: SICNE BEFORE ADMINISTRATION, AFTER BREAKFAST
     Route: 048
     Dates: end: 20090727
  5. FLUITRAN [Concomitant]
     Dosage: SICNE BEFORE ADMINISTRATION, AFTER BREAKFAST
     Route: 048
  6. URSO 250 [Concomitant]
     Dosage: SICNE BEFORE ADMINISTRATION, AFTER EVERY MEALS
     Route: 048
  7. CISPLATIN [Concomitant]
     Indication: HEPATIC NEOPLASM MALIGNANT
     Route: 025
     Dates: start: 20090623, end: 20090623
  8. MYSLEE [Concomitant]
     Indication: INSOMNIA
     Dosage: WHEN IT IS DIFFICULT TO SLEEP
     Route: 048
     Dates: end: 20090727
  9. NEXAVAR [Suspect]
     Indication: HEPATIC NEOPLASM MALIGNANT
     Route: 048
     Dates: start: 20090703, end: 20090707
  10. CONIEL [Concomitant]
     Dosage: SICNE BEFORE ADMINISTRATION, AFTER BREAKFAST
     Route: 048
     Dates: end: 20090727

REACTIONS (8)
  - BLOOD UREA INCREASED [None]
  - PALMAR-PLANTAR ERYTHRODYSAESTHESIA SYNDROME [None]
  - HEPATIC NEOPLASM MALIGNANT [None]
  - HEPATIC ENCEPHALOPATHY [None]
  - BLOOD BILIRUBIN INCREASED [None]
  - ASCITES [None]
  - TUMOUR LYSIS SYNDROME [None]
  - GASTRIC ULCER HAEMORRHAGE [None]
